FAERS Safety Report 4866584-4 (Version None)
Quarter: 2005Q4

REPORT INFORMATION
  Report Type: 
  Country: None (occurrence: None)
  Receive Date: 20051221
  Receipt Date: 20051213
  Transmission Date: 20060501
  Serious: Yes (Hospitalization, Other)
  Sender: FDA-Public Use
  Company Number: 2005BH003615

PATIENT
  Age: 30 Year
  Sex: Female

DRUGS (1)
  1. LACTATED RINGER'S [Suspect]
     Dosage: 100 ML; EVERY HR; IV
     Route: 042
     Dates: start: 20051212, end: 20051212

REACTIONS (1)
  - HYPERSENSITIVITY [None]
